FAERS Safety Report 6241643-2 (Version None)
Quarter: 2009Q2

REPORT INFORMATION
  Report Type: 
  Country: None (occurrence: None)
  Receive Date: 20090623
  Receipt Date: 20061129
  Transmission Date: 20091009
  Serious: Yes (Hospitalization)
  Sender: FDA-Public Use
  Company Number: ES-ROCHE-627319

PATIENT
  Sex: Male
  Weight: 95 kg

DRUGS (36)
  1. MYCOPHENOLATE MOFETIL [Suspect]
     Route: 048
     Dates: start: 20040309, end: 20040309
  2. MYCOPHENOLATE MOFETIL [Suspect]
     Route: 048
     Dates: start: 20040310
  3. MYCOPHENOLATE MOFETIL [Suspect]
     Route: 048
     Dates: start: 20040712
  4. MYCOPHENOLATE MOFETIL [Suspect]
     Route: 048
     Dates: start: 20040806
  5. MYCOPHENOLATE MOFETIL [Suspect]
     Route: 048
     Dates: start: 20040831, end: 20060612
  6. CYCLOSPORINE [Suspect]
     Route: 048
     Dates: start: 20040309, end: 20040309
  7. CYCLOSPORINE [Suspect]
     Route: 048
     Dates: start: 20040310, end: 20040322
  8. CYCLOSPORINE [Suspect]
     Route: 048
     Dates: start: 20040323, end: 20040614
  9. CYCLOSPORINE [Suspect]
     Route: 048
     Dates: start: 20040615, end: 20040615
  10. CYCLOSPORINE [Suspect]
     Route: 048
     Dates: start: 20040615
  11. CYCLOSPORINE [Suspect]
     Route: 048
     Dates: start: 20040802
  12. CYCLOSPORINE [Suspect]
     Route: 048
     Dates: start: 20041213
  13. CYCLOSPORINE [Suspect]
     Route: 048
     Dates: start: 20050203, end: 20060512
  14. TACROLIMUS [Suspect]
     Route: 048
     Dates: start: 20060512
  15. METHYLPREDNISOLONE [Suspect]
     Route: 042
     Dates: start: 20040309, end: 20040309
  16. METHYLPREDNISOLONE [Suspect]
     Route: 042
     Dates: start: 20040309, end: 20040309
  17. METHYLPREDNISOLONE [Suspect]
     Route: 042
     Dates: end: 20040311
  18. METHYLPREDNISOLONE [Suspect]
     Route: 042
     Dates: start: 20040723, end: 20040726
  19. PREDNISONE [Suspect]
     Dosage: MULTIPLE DOSAGE FORMS: TABLET AND CAPSULE
     Route: 048
     Dates: start: 20040311, end: 20041212
  20. PREDNISONE [Suspect]
     Route: 048
     Dates: start: 20041213, end: 20050712
  21. PREDNISONE [Suspect]
     Route: 048
     Dates: start: 20050713
  22. ACYCLOVIR [Concomitant]
     Route: 048
     Dates: start: 20040324, end: 20040628
  23. AMLODIPINE [Concomitant]
     Route: 048
     Dates: start: 20040317, end: 20040504
  24. ATORVASTATIN CALCIUM [Concomitant]
     Route: 048
     Dates: start: 20040420
  25. CEFOXITIN [Concomitant]
     Dosage: DRUG: CEPHOXITIN
     Route: 042
     Dates: start: 20040309, end: 20040313
  26. FURSEMIDE [Concomitant]
     Route: 048
     Dates: start: 20040802
  27. GANCICLOVIR [Concomitant]
     Dosage: ROUTE: INTRAVENOUS
     Route: 050
     Dates: start: 20040309, end: 20040309
  28. GANCICLOVIR [Concomitant]
     Dosage: ROUTE: INTRAVENOUS
     Route: 050
     Dates: start: 20040311, end: 20040315
  29. GANCICLOVIR [Concomitant]
     Dosage: ROUTE: ORAL
     Route: 050
     Dates: start: 20040316, end: 20040323
  30. GANCICLOVIR [Concomitant]
     Dosage: ROUTE: INTRAVENOUS
     Route: 050
     Dates: end: 20040324
  31. LEVOFLOXACIN [Concomitant]
     Route: 048
     Dates: start: 20040711, end: 20040722
  32. LEVOFLOXACIN [Concomitant]
     Route: 048
     Dates: start: 20040831, end: 20040915
  33. MYCOSTATIN [Concomitant]
     Route: 048
     Dates: start: 20040310, end: 20040324
  34. TRANDOLAPRIL [Concomitant]
     Dosage: DRUG: TRANSDOLAPRIL
     Route: 048
     Dates: start: 20040504, end: 20050415
  35. SULFAMETHOXAZOLE AND TRIMETHOPRIM [Concomitant]
     Dosage: DRUG: TRYMETOPTIN SULPHAMETOXASOL
     Route: 048
     Dates: start: 20040310, end: 20040702
  36. VERAPAMIL [Concomitant]
     Dosage: FREQUENCY REPORTED AS 180 MG PER HOUR WHICH SEEMS A TYPO. HENCE TAKEN 180 MG PER DAY
     Route: 048
     Dates: start: 20040504, end: 20050415

REACTIONS (2)
  - ARTERIAL STENOSIS [None]
  - TRANSPLANT FAILURE [None]
